FAERS Safety Report 4369237-4 (Version None)
Quarter: 2004Q2

REPORT INFORMATION
  Report Type: 
  Country: None (occurrence: None)
  Receive Date: 20040603
  Receipt Date: 20031117
  Transmission Date: 20050107
  Serious: Yes (Hospitalization, Disabling, Other)
  Sender: FDA-Public Use
  Company Number: US-GLAXOSMITHKLINE-A0439987A

PATIENT
  Age: 49 Year
  Sex: Female
  Weight: 81.8 kg

DRUGS (3)
  1. AUGMENTIN [Suspect]
     Indication: ILL-DEFINED DISORDER
  2. MALARONE [Concomitant]
     Indication: MALARIA
     Dates: start: 20030919, end: 20030921
  3. MEFLOQUINE HCL [Concomitant]
     Indication: PROPHYLAXIS
     Dosage: 1TAB WEEKLY
     Dates: start: 20030701, end: 20030801

REACTIONS (2)
  - LIVER FUNCTION TEST ABNORMAL [None]
  - PYREXIA [None]
